FAERS Safety Report 18169539 (Version 1)
Quarter: 2020Q3

REPORT INFORMATION
  Report Type: Spontaneous
  Country: US (occurrence: US)
  Receive Date: 20200819
  Receipt Date: 20200819
  Transmission Date: 20201103
  Serious: Yes (Hospitalization)
  Sender: FDA-Public Use
  Company Number: None

PATIENT
  Age: 38 Year
  Sex: Female

DRUGS (1)
  1. LEUKINE [Suspect]
     Active Substance: SARGRAMOSTIM
     Indication: ALVEOLAR PROTEINOSIS
     Dosage: ?          OTHER ROUTE:INHALE?
     Route: 055
     Dates: start: 20190703

REACTIONS (1)
  - Lung disorder [None]

NARRATIVE: CASE EVENT DATE: 20200801
